FAERS Safety Report 8919274 (Version 2)
Quarter: 2012Q4

REPORT INFORMATION
  Report Type: 
  Country: KR (occurrence: KR)
  Receive Date: 20121121
  Receipt Date: 20121123
  Transmission Date: 20130627
  Serious: Yes (Other)
  Sender: FDA-Public Use
  Company Number: KR-JNJFOC-20121107531

PATIENT
  Sex: Female

DRUGS (3)
  1. REMINYL [Suspect]
     Indication: DEMENTIA
     Route: 048
     Dates: start: 20121113, end: 20121115
  2. CELEBREX [Concomitant]
     Route: 065
  3. ARICEPT [Concomitant]
     Indication: DEMENTIA
     Route: 048

REACTIONS (6)
  - Syncope [Not Recovered/Not Resolved]
  - Drug prescribing error [Unknown]
  - Headache [Recovered/Resolved]
  - Incorrect dose administered [Unknown]
  - Weight decreased [Not Recovered/Not Resolved]
  - Blood pressure abnormal [Not Recovered/Not Resolved]
